FAERS Safety Report 12789412 (Version 1)
Quarter: 2016Q3

REPORT INFORMATION
  Report Type: Spontaneous
  Country: None (occurrence: US)
  Receive Date: 20160928
  Receipt Date: 20160928
  Transmission Date: 20161109
  Serious: Yes (Hospitalization, Other)
  Sender: FDA-Public Use
  Company Number: US-AMAG PHARMACEUTICALS, INC.-AMAG201601412

PATIENT

DRUGS (3)
  1. FLAGYL [Concomitant]
     Active Substance: METRONIDAZOLE\METRONIDAZOLE HYDROCHLORIDE
     Indication: INFECTION
     Route: 048
  2. MAKENA [Suspect]
     Active Substance: HYDROXYPROGESTERONE CAPROATE
     Indication: PREMATURE DELIVERY
     Dosage: 250 MG, WEEKLY
     Route: 030
  3. PRENATAL [Concomitant]
     Active Substance: VITAMINS
     Indication: PREGNANCY
     Route: 048

REACTIONS (2)
  - Premature rupture of membranes [Unknown]
  - Premature separation of placenta [Unknown]

NARRATIVE: CASE EVENT DATE: 20160723
